FAERS Safety Report 7386276-X (Version None)
Quarter: 2011Q1

REPORT INFORMATION
  Report Type: 
  Country: None (occurrence: None)
  Receive Date: 20110323
  Receipt Date: 20110308
  Transmission Date: 20110831
  Serious: Yes (Other)
  Sender: FDA-Public Use
  Company Number: 1000019305

PATIENT
  Age: 68 Year
  Sex: Female

DRUGS (3)
  1. ESCITALOPRAM OXALATE [Suspect]
     Indication: DEPRESSION
     Dosage: 10 MG (10 MG,1 IN 1 D), ORAL
     Route: 048
     Dates: start: 20040101
  2. ANTIHYPERTENSIVES (ANTIHYPERTENSIVES) (ANTIHYPERTENSIVES) [Concomitant]
  3. ALENDRONIC ACID (ALENDRONIC ACID) (ALENDRONIC ACID) [Concomitant]

REACTIONS (1)
  - OCULAR HYPERTENSION [None]
